FAERS Safety Report 7585014-5 (Version None)
Quarter: 2011Q2

REPORT INFORMATION
  Report Type: 
  Country: None (occurrence: None)
  Receive Date: 20110630
  Receipt Date: 20110621
  Transmission Date: 20111010
  Serious: Yes (Other)
  Sender: FDA-Public Use
  Company Number: GB-BAUSCH-2011BL004049

PATIENT
  Age: 35 Year
  Sex: Male

DRUGS (1)
  1. CROMOLYN SODIUM [Suspect]
     Indication: SEASONAL ALLERGY
     Route: 047

REACTIONS (4)
  - EYE PAIN [None]
  - PARAESTHESIA [None]
  - EYELID OEDEMA [None]
  - EYE PRURITUS [None]
